FAERS Safety Report 6266264-7 (Version None)
Quarter: 2009Q3

REPORT INFORMATION
  Report Type: 
  Country: None (occurrence: None)
  Receive Date: 20090713
  Receipt Date: 20090708
  Transmission Date: 20100115
  Serious: Yes (Life-Threatening, Hospitalization)
  Sender: FDA-Public Use
  Company Number: GB-ABBOTT-09P-167-0578227-00

PATIENT
  Age: 35 Year
  Sex: Female

DRUGS (12)
  1. SEVOFLURANE [Suspect]
     Indication: MAINTENANCE OF ANAESTHESIA
     Dosage: 2-3%
     Route: 055
  2. LIDOCAINE [Suspect]
     Indication: DRUG USE FOR UNKNOWN INDICATION
     Dosage: 2%
     Route: 045
  3. EPINEPHRINE [Suspect]
     Indication: DRUG USE FOR UNKNOWN INDICATION
  4. ONDANSETRON [Suspect]
     Indication: DRUG USE FOR UNKNOWN INDICATION
  5. COCAINE [Suspect]
     Indication: ANAESTHESIA
     Route: 045
  6. AMIODARONE HCL [Suspect]
     Indication: HYPOTENSION
  7. SODIUM BICARBONATE [Concomitant]
     Indication: DRUG USE FOR UNKNOWN INDICATION
  8. DICLOFENAC [Concomitant]
     Indication: MAINTENANCE OF ANAESTHESIA
  9. PROPOFOL [Concomitant]
     Indication: INDUCTION OF ANAESTHESIA
  10. FENTANYL [Concomitant]
     Indication: INDUCTION OF ANAESTHESIA
  11. NITROUS OXIDE [Concomitant]
     Indication: MAINTENANCE OF ANAESTHESIA
     Dosage: 60% IN OXYGEN
  12. OXYGEN [Concomitant]
     Indication: MAINTENANCE OF ANAESTHESIA
     Dosage: NOT REPORTED

REACTIONS (2)
  - CARDIAC ARREST [None]
  - LONG QT SYNDROME [None]
